FAERS Safety Report 8593220 (Version 7)
Quarter: 2012Q4

REPORT INFORMATION
  Report Type: 
  Country: US (occurrence: US)
  Receive Date: 20120604
  Receipt Date: 20120913
  Transmission Date: 20130627
  Serious: Yes (Other)
  Sender: FDA-Public Use
  Company Number: US-PFIZER INC-2012130227

PATIENT
  Age: 53 Year
  Sex: Female
  Weight: 61.22 kg

DRUGS (5)
  1. PREMARIN [Concomitant]
     Dosage: UNK
  2. LYRICA [Suspect]
     Indication: FIBROMYALGIA
     Dosage: 75 mg, 2x/day
     Route: 048
  3. CELEBREX [Concomitant]
     Dosage: UNK
  4. LIPITOR [Concomitant]
     Dosage: UNK
  5. NORVASC [Concomitant]
     Dosage: UNK

REACTIONS (18)
  - Concussion [Unknown]
  - Face injury [Unknown]
  - Spinal column injury [Unknown]
  - Tendon injury [Unknown]
  - Accident [Unknown]
  - Fall [Unknown]
  - Gingival injury [Unknown]
  - Periorbital contusion [Unknown]
  - Jaw disorder [Unknown]
  - Pain [Unknown]
  - Memory impairment [Unknown]
  - Gingival bleeding [Unknown]
  - Tooth disorder [Unknown]
  - Pain in extremity [Unknown]
  - Headache [Unknown]
  - Scar [Unknown]
  - Tooth fracture [Unknown]
  - Mouth injury [Unknown]
